FAERS Safety Report 9655628 (Version 2)
Quarter: 2013Q4

REPORT INFORMATION
  Report Type: Spontaneous
  Country: JP (occurrence: JP)
  Receive Date: 20131030
  Receipt Date: 20131114
  Transmission Date: 20140711
  Serious: Yes (Other)
  Sender: FDA-Public Use
  Company Number: JP-PFIZER INC-2013304803

PATIENT
  Age: 7 Decade
  Sex: Female

DRUGS (5)
  1. ALPRAZOLAM [Suspect]
     Indication: FEAR
     Dosage: 1.2 MG, DAILY
     Route: 048
  2. ALPRAZOLAM [Suspect]
     Indication: ANXIETY
  3. ALPRAZOLAM [Suspect]
     Indication: DEPRESSION
  4. MILNACIPRAN [Suspect]
     Dosage: 90 MG, UNK
  5. ZOMETA [Suspect]
     Dosage: UNK

REACTIONS (4)
  - Osteonecrosis of jaw [Unknown]
  - Therapeutic response decreased [Recovering/Resolving]
  - Depressive symptom [Recovering/Resolving]
  - Somnolence [Unknown]
